FAERS Safety Report 4935975-5 (Version None)
Quarter: 2006Q1

REPORT INFORMATION
  Report Type: 
  Country: None (occurrence: None)
  Receive Date: 20060307
  Receipt Date: 20050811
  Transmission Date: 20060701
  Serious: No
  Sender: FDA-Public Use
  Company Number: US-GLAXOSMITHKLINE-A0569848A

PATIENT
  Age: 62 Year
  Sex: Female

DRUGS (6)
  1. REQUIP [Suspect]
     Indication: RESTLESS LEGS SYNDROME
     Dosage: .25MG PER DAY
     Route: 048
     Dates: start: 20050810
  2. ZANTAC [Concomitant]
  3. ANTIVERT [Concomitant]
  4. EXTRA STRENGTH TYLENOL [Concomitant]
  5. ADVIL [Concomitant]
  6. ANTIVERT [Concomitant]

REACTIONS (3)
  - FATIGUE [None]
  - HEADACHE [None]
  - PAIN IN EXTREMITY [None]
